FAERS Safety Report 5262790-8 (Version None)
Quarter: 2007Q1

REPORT INFORMATION
  Report Type: 
  Country: None (occurrence: None)
  Receive Date: 20070312
  Receipt Date: 20070306
  Transmission Date: 20070707
  Serious: Yes (Life-Threatening, Hospitalization)
  Sender: FDA-Public Use
  Company Number: JP-JPN-A200700602

PATIENT
  Age: 78 Year
  Sex: Male
  Weight: 46 kg

DRUGS (9)
  1. PAXIL [Suspect]
     Indication: DEPRESSION
     Route: 048
     Dates: start: 20070118, end: 20070216
  2. ASPENON [Suspect]
     Indication: ATRIAL FIBRILLATION
     Dosage: 20MG TWICE PER DAY
     Route: 048
     Dates: end: 20070213
  3. FLIVAS [Concomitant]
     Indication: BENIGN PROSTATIC HYPERPLASIA
     Dosage: 50MG PER DAY
     Route: 048
  4. DILTIAZEM HCL [Concomitant]
     Indication: HYPERTENSION
     Dosage: 200MG PER DAY
     Route: 048
  5. NU-LOTAN [Concomitant]
     Indication: HYPERTENSION
     Dosage: 50MG PER DAY
     Route: 048
  6. MUCODYNE [Concomitant]
     Indication: EMPHYSEMA
     Dosage: 1500MG PER DAY
     Route: 048
  7. MUCOSOLVAN [Concomitant]
     Indication: EMPHYSEMA
     Dosage: 45MG PER DAY
     Route: 048
     Dates: start: 20070202
  8. PURSENNID [Concomitant]
     Indication: CONSTIPATION
     Dosage: 24MG PER DAY
     Route: 048
  9. SEREVENT [Concomitant]
     Indication: EMPHYSEMA
     Dosage: 100MCG PER DAY
     Route: 055

REACTIONS (3)
  - C-REACTIVE PROTEIN INCREASED [None]
  - ILL-DEFINED DISORDER [None]
  - PNEUMONITIS [None]
